FAERS Safety Report 6875115-9 (Version None)
Quarter: 2010Q3

REPORT INFORMATION
  Report Type: 
  Country: None (occurrence: None)
  Receive Date: 20100727
  Receipt Date: 20080609
  Transmission Date: 20110219
  Serious: Yes (Hospitalization, Other)
  Sender: FDA-Public Use
  Company Number: US-PFIZER INC-2006064464

PATIENT
  Sex: Female
  Weight: 44 kg

DRUGS (4)
  1. CELEBREX [Suspect]
     Indication: PAIN
     Route: 048
     Dates: start: 20040706
  2. BEXTRA [Suspect]
     Indication: ARTHRALGIA
     Route: 048
     Dates: start: 20040301
  3. BEXTRA [Suspect]
     Indication: ARTHRITIS
  4. VIOXX [Suspect]
     Route: 048
     Dates: start: 20010501, end: 20040201

REACTIONS (1)
  - INTRACARDIAC THROMBUS [None]
